FAERS Safety Report 11024397 (Version 2)
Quarter: 2015Q2

REPORT INFORMATION
  Report Type: Spontaneous
  Country: US (occurrence: US)
  Receive Date: 20150414
  Receipt Date: 20150424
  Transmission Date: 20150821
  Serious: Yes (Other)
  Sender: FDA-Public Use
  Company Number: US-BEH-2015050182

PATIENT
  Sex: Female
  Weight: 58 kg

DRUGS (22)
  1. EPIPEN [Concomitant]
     Active Substance: EPINEPHRINE
  2. LMX [Concomitant]
     Active Substance: LIDOCAINE
  3. LORTAB [Concomitant]
     Active Substance: ACETAMINOPHEN\HYDROCODONE BITARTRATE
  4. LANTUS [Concomitant]
     Active Substance: INSULIN GLARGINE
  5. ACETAMINOPHEN. [Concomitant]
     Active Substance: ACETAMINOPHEN
  6. IPRATROPIUM BROMIDE. [Concomitant]
     Active Substance: IPRATROPIUM BROMIDE
  7. CVS VITAMIN D [Concomitant]
  8. OXYGEN. [Concomitant]
     Active Substance: OXYGEN
  9. CENTRUM SILVER [Concomitant]
     Active Substance: VITAMINS
  10. NEURONTIN [Concomitant]
     Active Substance: GABAPENTIN
  11. ALBUTEROL SULFATE. [Concomitant]
     Active Substance: ALBUTEROL SULFATE
  12. AMBIEN [Concomitant]
     Active Substance: ZOLPIDEM TARTRATE
  13. SYNTHROID [Concomitant]
     Active Substance: LEVOTHYROXINE SODIUM
  14. ASPIRIN. [Concomitant]
     Active Substance: ASPIRIN
  15. CALCIUM 600+D [Concomitant]
     Active Substance: CALCIUM\VITAMIN D
  16. IRON [Concomitant]
     Active Substance: IRON
  17. LASIX [Concomitant]
     Active Substance: FUROSEMIDE
  18. PULMICORT TURBUHALER [Concomitant]
     Active Substance: BUDESONIDE
  19. PRESERVISION [Concomitant]
     Active Substance: MINERALS\VITAMINS
  20. HIZENTRA [Suspect]
     Active Substance: HUMAN IMMUNOGLOBULIN G
     Indication: PRODUCT USED FOR UNKNOWN INDICATION
     Route: 058
  21. PREDNISONE. [Concomitant]
     Active Substance: PREDNISONE
  22. DIPHENHYDRAMINE [Concomitant]
     Active Substance: DIPHENHYDRAMINE

REACTIONS (2)
  - Alopecia [Unknown]
  - Aneurysm [Unknown]
